FAERS Safety Report 15813498 (Version 1)
Quarter: 2019Q1

REPORT INFORMATION
  Report Type: Report from Study
  Country: BE (occurrence: BE)
  Receive Date: 20190111
  Receipt Date: 20190111
  Transmission Date: 20190417
  Serious: Yes (Hospitalization, Other)
  Sender: FDA-Public Use
  Company Number: BE-TEVA-2019-BE-997358

PATIENT
  Age: 48 Year
  Sex: Male
  Weight: 92 kg

DRUGS (32)
  1. CYCLOPHOSPHAMID [Suspect]
     Active Substance: CYCLOPHOSPHAMIDE
     Indication: ACUTE LYMPHOCYTIC LEUKAEMIA
     Dosage: REGIMEN 1
     Route: 065
     Dates: start: 20160419, end: 20160419
  2. CYTARABINE. [Suspect]
     Active Substance: CYTARABINE
     Dosage: REGIMEN 3
     Dates: start: 20160609, end: 20160609
  3. CIALIS [Concomitant]
     Active Substance: TADALAFIL
     Dates: start: 20160412, end: 20161107
  4. FOLINIC ACID [Suspect]
     Active Substance: LEUCOVORIN
     Dosage: UNK, REGIMEN 2
     Route: 065
     Dates: start: 20160519, end: 20160519
  5. METHOTREXATE SODIUM. [Suspect]
     Active Substance: METHOTREXATE SODIUM
     Indication: ACUTE LYMPHOCYTIC LEUKAEMIA
     Dosage: REGIMEN 1
     Route: 065
     Dates: start: 20160419, end: 20160419
  6. METHOTREXATE SODIUM. [Suspect]
     Active Substance: METHOTREXATE SODIUM
     Route: 065
     Dates: start: 20160609, end: 20160609
  7. VINCRISTINE [Suspect]
     Active Substance: VINCRISTINE
     Dosage: REGIMEN 3
     Route: 065
     Dates: start: 20160609, end: 20160609
  8. METHYLPREDNISOLONE. [Suspect]
     Active Substance: METHYLPREDNISOLONE
     Dosage: REGIMEN 3
     Route: 065
     Dates: start: 20160609, end: 20160609
  9. DOXORUBICIN HCL [Suspect]
     Active Substance: DOXORUBICIN HYDROCHLORIDE
     Indication: ACUTE LYMPHOCYTIC LEUKAEMIA
     Dosage: REGIMEN 1
     Route: 065
     Dates: start: 20160419, end: 20160419
  10. DOXORUBICIN HCL [Suspect]
     Active Substance: DOXORUBICIN HYDROCHLORIDE
     Dosage: UNK, REGIMEN 3
     Route: 065
     Dates: start: 20160609, end: 20160609
  11. CYTARABINE. [Suspect]
     Active Substance: CYTARABINE
     Dosage: REGIMEN 2
     Route: 065
     Dates: start: 20160519, end: 20160519
  12. DEXAMETHASONE. [Suspect]
     Active Substance: DEXAMETHASONE
     Dosage: REGIMEN 3
     Route: 065
     Dates: start: 20160609, end: 20160609
  13. CYTARABINE. [Suspect]
     Active Substance: CYTARABINE
     Indication: ACUTE LYMPHOCYTIC LEUKAEMIA
     Dosage: REGIMEN 1
     Dates: start: 20160419, end: 20160419
  14. CYCLOPHOSPHAMID [Suspect]
     Active Substance: CYCLOPHOSPHAMIDE
     Dosage: REGIMEN 3
     Dates: start: 20160609, end: 20160609
  15. VINCRISTINE [Suspect]
     Active Substance: VINCRISTINE
     Dosage: UNK, REGIMEN 1
     Route: 065
     Dates: start: 20160419, end: 20160419
  16. METHOTREXATE SODIUM. [Suspect]
     Active Substance: METHOTREXATE SODIUM
     Dosage: UNK, REGIMEN 2
     Route: 065
     Dates: start: 20160519, end: 20160519
  17. ICLUSIG [Suspect]
     Active Substance: PONATINIB
     Indication: ACUTE LYMPHOCYTIC LEUKAEMIA
     Dosage: 45 MILLIGRAM DAILY;
     Route: 048
     Dates: start: 20160426
  18. PRIMPERAN [Concomitant]
     Active Substance: METOCLOPRAMIDE HYDROCHLORIDE
     Dates: end: 20161107
  19. METHYLPREDNISOLONE. [Suspect]
     Active Substance: METHYLPREDNISOLONE
     Dosage: UNK, REGIMEN 2
     Route: 065
     Dates: start: 20160519, end: 20160519
  20. FOLINIC ACID [Suspect]
     Active Substance: LEUCOVORIN
     Dosage: UNK, REGIMEN 1
     Route: 065
     Dates: start: 20160419, end: 20160419
  21. CYCLOPHOSPHAMID [Suspect]
     Active Substance: CYCLOPHOSPHAMIDE
     Dosage: REGIMEN 2
     Dates: start: 20160519, end: 20160519
  22. ACICLOVIR [Concomitant]
     Active Substance: ACYCLOVIR
     Dates: end: 20161107
  23. DOXORUBICIN HCL [Suspect]
     Active Substance: DOXORUBICIN HYDROCHLORIDE
     Dosage: UNK, REGIMEN 2
     Route: 048
     Dates: start: 20160519, end: 20160519
  24. FOLINIC ACID [Suspect]
     Active Substance: LEUCOVORIN
     Dosage: REGIMEN 3
     Route: 065
     Dates: start: 20160609, end: 20160609
  25. NEULASTA [Suspect]
     Active Substance: PEGFILGRASTIM
     Dosage: 6 MILLIGRAM DAILY; (6 MG/0.6 ML)
     Route: 065
     Dates: start: 20160529, end: 20161107
  26. DEXAMETHASONE. [Suspect]
     Active Substance: DEXAMETHASONE
     Indication: ACUTE LYMPHOCYTIC LEUKAEMIA
     Dosage: REGIMEN 1
     Dates: start: 20160419, end: 20160419
  27. METHYLPREDNISOLONE. [Suspect]
     Active Substance: METHYLPREDNISOLONE
     Dosage: UNK, REGIMEN 1
     Route: 065
     Dates: start: 20160419, end: 20160419
  28. VINCRISTINE [Suspect]
     Active Substance: VINCRISTINE
     Dosage: UNK, REGIMEN 2
     Route: 065
     Dates: start: 20160519, end: 20160519
  29. DEXAMETHASONE. [Suspect]
     Active Substance: DEXAMETHASONE
     Dosage: REGIMEN 2
     Dates: start: 20160519, end: 20160519
  30. CALCIUM CARBONATE. [Concomitant]
     Active Substance: CALCIUM CARBONATE
  31. RANITIDINE. [Concomitant]
     Active Substance: RANITIDINE
     Dates: start: 20160412, end: 20161107
  32. PENTACARINAT [Concomitant]
     Active Substance: PENTAMIDINE ISETHIONATE
     Dates: end: 20160519

REACTIONS (10)
  - Pyrexia [Recovered/Resolved]
  - Nasal congestion [Unknown]
  - Muscular weakness [Unknown]
  - Osteomyelitis [Unknown]
  - Inflammation [Recovered/Resolved]
  - Oesophagitis [Unknown]
  - Haematopoietic stem cell mobilisation [Unknown]
  - Chills [Unknown]
  - Neutropenia [Recovered/Resolved]
  - Tongue disorder [Unknown]

NARRATIVE: CASE EVENT DATE: 20160614
